FAERS Safety Report 5688075-3 (Version None)
Quarter: 2008Q1

REPORT INFORMATION
  Report Type: 
  Country: None (occurrence: None)
  Receive Date: 20080327
  Receipt Date: 20080318
  Transmission Date: 20080703
  Serious: Yes (Other)
  Sender: FDA-Public Use
  Company Number: 2008BI007444

PATIENT
  Age: 32 Year
  Sex: Female

DRUGS (2)
  1. TYSABRI [Suspect]
     Indication: MULTIPLE SCLEROSIS
     Dosage: 300 MG;QM;IV
     Route: 042
     Dates: start: 20061129
  2. AVONEX [Concomitant]

REACTIONS (2)
  - CONVULSION [None]
  - URINARY TRACT INFECTION [None]
